FAERS Safety Report 4825905-9 (Version None)
Quarter: 2005Q4

REPORT INFORMATION
  Report Type: 
  Country: None (occurrence: None)
  Receive Date: 20051111
  Receipt Date: 20051104
  Transmission Date: 20060501
  Serious: Yes (Other)
  Sender: FDA-Public Use
  Company Number: US-JNJFOC-20051102218

PATIENT
  Sex: Female
  Weight: 102.06 kg

DRUGS (2)
  1. ORTHO EVRA [Suspect]
     Route: 062
     Dates: start: 20040101
  2. SUDAFED 12 HOUR [Concomitant]
     Indication: SINUS OPERATION

REACTIONS (5)
  - CONSTIPATION [None]
  - HAEMORRHOIDS [None]
  - TONSILLITIS [None]
  - WEIGHT DECREASED [None]
  - WITHDRAWAL BLEED [None]
